FAERS Safety Report 17521235 (Version 1)
Quarter: 2020Q1

REPORT INFORMATION
  Report Type: Report from Study
  Country: US (occurrence: US)
  Receive Date: 20200310
  Receipt Date: 20200310
  Transmission Date: 20200409
  Serious: Yes (Death)
  Sender: FDA-Public Use
  Company Number: US-MYLANLABS-2020M1026698

PATIENT
  Age: 62 Year
  Sex: Male

DRUGS (13)
  1. CISPLATIN. [Suspect]
     Active Substance: CISPLATIN
     Indication: PANCREATIC CARCINOMA METASTATIC
     Dosage: CISPLATIN IN OF SODIUM CHLORIDE (NS) ON DAYS 1 AND 8
     Route: 042
  2. SODIUM CHLORIDE. [Concomitant]
     Active Substance: SODIUM CHLORIDE
     Indication: PROPHYLAXIS AGAINST DEHYDRATION
     Dosage: PRE CISPLATIN HYDRATION WITH 0.9% SODIUM CHLORIDE ON DAYS 1 AND 8
     Route: 042
  3. DEXAMETHASONE. [Concomitant]
     Active Substance: DEXAMETHASONE
     Indication: PREMEDICATION
     Dosage: PRIOR TO TREATMENT ON DAYS 1 AND 8
     Route: 042
  4. DEXAMETHASONE. [Concomitant]
     Active Substance: DEXAMETHASONE
     Indication: ANTIEMETIC SUPPORTIVE CARE
     Dosage: AFTER CHEMOTHERAPY; CYCLE REPEATED EVERY 21 DAYS
     Route: 048
  5. ONDANSETRON [Concomitant]
     Active Substance: ONDANSETRON
     Indication: ANTIEMETIC SUPPORTIVE CARE
     Dosage: AFTER CHEMOTHERAPY; CYCLE REPEATED EVERY 21 DAYS
     Route: 048
  6. MANNITOL. [Concomitant]
     Active Substance: MANNITOL
     Indication: PROPHYLAXIS AGAINST DEHYDRATION
     Dosage: PRE CISPLATIN HYDRATION ON DAYS 1 AND 8
     Route: 042
  7. MAGNESIUM SULFATE. [Concomitant]
     Active Substance: MAGNESIUM SULFATE
     Indication: PROPHYLAXIS AGAINST DEHYDRATION
     Dosage: PRE CISPLATIN HYDRATION ON DAYS 1 AND 8
     Route: 042
  8. PACLITAXEL. [Suspect]
     Active Substance: PACLITAXEL
     Indication: PANCREATIC CARCINOMA METASTATIC
     Dosage: ON DAYS 1 AND 8
     Route: 042
  9. PEGFILGRASTIM [Concomitant]
     Active Substance: PEGFILGRASTIM
     Dosage: ON DAY 9 OF EACH CYCLE
     Route: 058
  10. GEMCITABINE. [Suspect]
     Active Substance: GEMCITABINE
     Indication: PANCREATIC CARCINOMA METASTATIC
     Dosage: GEMCITABINE IN 500ML ON DAYS 1 AND 8 REPEATED EVERY 21 DAYS
     Route: 042
  11. SODIUM CHLORIDE. [Concomitant]
     Active Substance: SODIUM CHLORIDE
     Indication: VEHICLE SOLUTION USE
  12. EMEND [Concomitant]
     Active Substance: APREPITANT
     Indication: ANTIEMETIC SUPPORTIVE CARE
     Dosage: PRIOR TO TREATMENT ON DAYS 1 AND 8
     Route: 042
  13. ALOXI [Concomitant]
     Active Substance: PALONOSETRON HYDROCHLORIDE
     Indication: ANTIEMETIC SUPPORTIVE CARE
     Dosage: PRIOR TO TREATMENT ON DAYS 1 AND 8
     Route: 042

REACTIONS (1)
  - Haemorrhagic stroke [Fatal]
